FAERS Safety Report 4587102-4 (Version None)
Quarter: 2005Q1

REPORT INFORMATION
  Report Type: 
  Country: None (occurrence: None)
  Receive Date: 20050214
  Receipt Date: 20050201
  Transmission Date: 20050727
  Serious: Yes (Hospitalization)
  Sender: FDA-Public Use
  Company Number: HQWYE017602FEB05

PATIENT
  Age: 81 Year
  Sex: Female

DRUGS (9)
  1. CORDARONE [Suspect]
     Indication: EXTRASYSTOLES
     Dosage: 300 MG 1X PER 1 DAY, INTRAVENOUS
     Route: 042
     Dates: start: 20041109, end: 20041109
  2. MAXIPIME [Concomitant]
  3. HEPARIN [Concomitant]
  4. PLAVIX [Concomitant]
  5. ASPIRIN [Concomitant]
  6. ACETYLCYSTEINE [Concomitant]
  7. UNSPECIFIED BETA BLOCKER [Concomitant]
  8. MORPHINE [Concomitant]
  9. CORDARONE [Suspect]
     Dosage: 900 MG 1X PER 1 DAY, INTRAVENOUS
     Route: 042
     Dates: start: 20041109, end: 20041119

REACTIONS (3)
  - HYPOKALAEMIA [None]
  - PULMONARY OEDEMA [None]
  - TORSADE DE POINTES [None]
